FAERS Safety Report 6965700-8 (Version None)
Quarter: 2010Q3

REPORT INFORMATION
  Report Type: 
  Country: None (occurrence: None)
  Receive Date: 20100903
  Receipt Date: 20100819
  Transmission Date: 20110219
  Serious: Yes (Death, Hospitalization)
  Sender: FDA-Public Use
  Company Number: CO-ROCHE-721945

PATIENT
  Sex: Female

DRUGS (1)
  1. ISOTRETINOIN [Suspect]
     Indication: ACNE
     Dosage: FREQUENCY: QD.
     Route: 048

REACTIONS (3)
  - FOETAL MALFORMATION [None]
  - INTRA-UTERINE DEATH [None]
  - NO ADVERSE EVENT [None]
